FAERS Safety Report 11937163 (Version 2)
Quarter: 2016Q1

REPORT INFORMATION
  Report Type: Spontaneous
  Country: JP (occurrence: JP)
  Receive Date: 20160121
  Receipt Date: 20160323
  Transmission Date: 20160526
  Serious: Yes (Hospitalization)
  Sender: FDA-Public Use
  Company Number: JP-MYLANLABS-2016M1002091

PATIENT

DRUGS (3)
  1. BLEO                               /00183903/ [Suspect]
     Active Substance: BLEOMYCIN HYDROCHLORIDE
     Indication: TERATOMA
     Dosage: 4COURSE
     Route: 065
  2. ETOPOSIDE. [Suspect]
     Active Substance: ETOPOSIDE
     Indication: TERATOMA
     Dosage: 4COURSE
     Route: 065
  3. CARBOPLATIN. [Suspect]
     Active Substance: CARBOPLATIN
     Indication: TERATOMA
     Dosage: 4COURSE
     Route: 041

REACTIONS (1)
  - Teratoma [Not Recovered/Not Resolved]
